FAERS Safety Report 9819825 (Version 1)
Quarter: 2014Q1

REPORT INFORMATION
  Report Type: Spontaneous
  Country: US (occurrence: None)
  Receive Date: 20140114
  Receipt Date: 20140114
  Transmission Date: 20141002
  Serious: Yes (Other)
  Sender: FDA-Public Use
  Company Number: None

PATIENT
  Sex: Female

DRUGS (1)
  1. NORDITROPIN FLEXPRO [Suspect]
     Indication: DWARFISM
     Dosage: 15/MG/1.5 ML 1/4 MG SIXE TIEMS PER WEEK SUB Q
     Dates: start: 20130822

REACTIONS (3)
  - Angina pectoris [None]
  - Heart rate increased [None]
  - Asthma [None]
